FAERS Safety Report 5493165-4 (Version None)
Quarter: 2007Q4

REPORT INFORMATION
  Report Type: 
  Country: None (occurrence: None)
  Receive Date: 20071022
  Receipt Date: 20071022
  Transmission Date: 20080405
  Serious: Yes (Other)
  Sender: FDA-Public Use
  Company Number: None

PATIENT
  Age: 33 Year
  Sex: Female

DRUGS (1)
  1. FOSAMAX [Suspect]
     Indication: OSTEOPENIA
     Dosage: 70 1QWK ORAL
     Route: 048
     Dates: end: 20070401

REACTIONS (2)
  - IMPAIRED HEALING [None]
  - TEMPOROMANDIBULAR JOINT SYNDROME [None]
